FAERS Safety Report 5148749-X (Version None)
Quarter: 2006Q4

REPORT INFORMATION
  Report Type: 
  Country: None (occurrence: None)
  Receive Date: 20061107
  Receipt Date: 20061025
  Transmission Date: 20070319
  Serious: Yes (Death)
  Sender: FDA-Public Use
  Company Number: 231777

PATIENT
  Sex: Male

DRUGS (2)
  1. AVASTIN (BEVACIZUMAV) PWDR + SOLVENT, INFUSION SOLN, 100MG [Suspect]
     Indication: NON-SMALL CELL LUNG CANCER
     Dates: start: 20060401
  2. CAMPTOSAR [Concomitant]

REACTIONS (1)
  - DEATH [None]
